FAERS Safety Report 25705441 (Version 1)
Quarter: 2025Q3

REPORT INFORMATION
  Report Type: Spontaneous
  Country: CA (occurrence: CA)
  Receive Date: 20250820
  Receipt Date: 20250820
  Transmission Date: 20251021
  Serious: Yes (Hospitalization, Other)
  Sender: BRACCO
  Company Number: CA-BRACCO-2025CA05627

PATIENT
  Age: 87 Year
  Sex: Female

DRUGS (13)
  1. ISOVUE 370 [Suspect]
     Active Substance: IOPAMIDOL
     Indication: Computerised tomogram abdomen
     Route: 042
  2. AFLIBERCEPT [Concomitant]
     Active Substance: AFLIBERCEPT
  3. AMLODIPINE [Concomitant]
     Active Substance: AMLODIPINE BESYLATE
     Route: 065
  4. AZARGA [Concomitant]
     Active Substance: BRINZOLAMIDE\TIMOLOL MALEATE
  5. CARVEDILOL [Concomitant]
     Active Substance: CARVEDILOL
  6. CETIRIZINE [Concomitant]
     Active Substance: CETIRIZINE HYDROCHLORIDE
  7. CLOBETASOL PROPIONATE [Concomitant]
     Active Substance: CLOBETASOL PROPIONATE
  8. HYDROCHLOROTHIAZIDE\TELMISARTAN [Concomitant]
     Active Substance: HYDROCHLOROTHIAZIDE\TELMISARTAN
  9. PREDNISONE [Concomitant]
     Active Substance: PREDNISONE
  10. RIVAROXABAN [Concomitant]
     Active Substance: RIVAROXABAN
     Route: 065
  11. ROSUVASTATIN [Concomitant]
     Active Substance: ROSUVASTATIN
     Route: 065
  12. SYSTANE (HYPROMELLOSE 2910 (4000 MPA.S)) [Concomitant]
     Active Substance: HYPROMELLOSE 2910 (4000 MPA.S)
  13. TIMOLOL\TRAVOPROST [Concomitant]
     Active Substance: TIMOLOL\TRAVOPROST

REACTIONS (10)
  - Renal tubular necrosis [Recovering/Resolving]
  - Acute kidney injury [Recovering/Resolving]
  - Dermatitis exfoliative generalised [Recovering/Resolving]
  - Drug reaction with eosinophilia and systemic symptoms [Recovering/Resolving]
  - Contrast media reaction [Recovering/Resolving]
  - Eosinophilia [Recovering/Resolving]
  - Hypersensitivity [Recovering/Resolving]
  - Pruritus [Recovering/Resolving]
  - Rash [Recovering/Resolving]
  - Rash morbilliform [Recovering/Resolving]
